FAERS Safety Report 20086965 (Version 1)
Quarter: 2021Q4

REPORT INFORMATION
  Report Type: Spontaneous
  Country: CA (occurrence: CA)
  Receive Date: 20211118
  Receipt Date: 20211118
  Transmission Date: 20220303
  Serious: Yes (Death, Hospitalization)
  Sender: FDA-Public Use
  Company Number: CA-TEVA-2021-CA-1977682

PATIENT
  Age: 91 Year
  Sex: Female

DRUGS (2)
  1. ATENOLOL [Suspect]
     Active Substance: ATENOLOL
     Indication: Atrial fibrillation
     Dosage: FREQUENCY: EVERY 1 DAY
     Route: 048
  2. ELIQUIS [Suspect]
     Active Substance: APIXABAN
     Indication: Cerebrovascular accident prophylaxis
     Dosage: 10 MILLIGRAM DAILY;
     Route: 048

REACTIONS (5)
  - Cerebral haemorrhage [Fatal]
  - Cerebrovascular accident [Fatal]
  - Chills [Fatal]
  - Pyrexia [Fatal]
  - Vomiting [Fatal]
